FAERS Safety Report 14007145 (Version 1)
Quarter: 2017Q3

REPORT INFORMATION
  Report Type: Report from Study
  Country: CA (occurrence: CA)
  Receive Date: 20170925
  Receipt Date: 20170925
  Transmission Date: 20171128
  Serious: Yes (Disabling)
  Sender: FDA-Public Use
  Company Number: CA-AMGEN-CANSL2017143531

PATIENT
  Age: 77 Year
  Sex: Male
  Weight: 59.5 kg

DRUGS (2)
  1. KYPROLIS [Suspect]
     Active Substance: CARFILZOMIB
     Dosage: UNK DOSE REDUCE
     Route: 042
     Dates: start: 20170915
  2. KYPROLIS [Suspect]
     Active Substance: CARFILZOMIB
     Indication: PLASMA CELL MYELOMA
     Dosage: 45 MG, OD X 2 X 3 WEEKS
     Route: 042

REACTIONS (1)
  - Toxicity to various agents [Recovering/Resolving]
